FAERS Safety Report 14895583 (Version 2)
Quarter: 2018Q2

REPORT INFORMATION
  Report Type: Report from Study
  Country: MX (occurrence: MX)
  Receive Date: 20180515
  Receipt Date: 20180518
  Transmission Date: 20180711
  Serious: Yes (Death, Other)
  Sender: FDA-Public Use
  Company Number: PHHY2018MX009149

PATIENT
  Sex: Female

DRUGS (1)
  1. STALEVO [Suspect]
     Active Substance: CARBIDOPA\ENTACAPONE\LEVODOPA
     Indication: PARKINSON^S DISEASE
     Dosage: 2 DF (12.5 MG OF CARBIDOPA, 200 MG OF ENTACAPONE, 50 MG OF LEVODOPA), QD
     Route: 048

REACTIONS (5)
  - Hydrocephalus [Recovered/Resolved]
  - Speech disorder [Unknown]
  - Gait inability [Unknown]
  - Depression [Fatal]
  - Eating disorder [Unknown]
